FAERS Safety Report 6300002-4 (Version None)
Quarter: 2009Q3

REPORT INFORMATION
  Report Type: 
  Country: None (occurrence: None)
  Receive Date: 20090806
  Receipt Date: 20090727
  Transmission Date: 20100115
  Serious: Yes (Hospitalization)
  Sender: FDA-Public Use
  Company Number: US-ELI_LILLY_AND_COMPANY-US200906005741

PATIENT
  Sex: Female

DRUGS (3)
  1. FORTEO [Suspect]
     Dosage: UNK, UNK
     Dates: start: 20090619
  2. FENTANYL [Concomitant]
     Dosage: 50 G, 2/W
  3. CALCIUM CARBONATE [Concomitant]

REACTIONS (4)
  - BACK PAIN [None]
  - NEPHROLITHIASIS [None]
  - PAIN [None]
  - SPINAL FRACTURE [None]
